FAERS Safety Report 18348406 (Version 1)
Quarter: 2020Q4

REPORT INFORMATION
  Report Type: Spontaneous
  Country: US (occurrence: US)
  Receive Date: 20201005
  Receipt Date: 20201005
  Transmission Date: 20210114
  Serious: No
  Sender: FDA-Public Use
  Company Number: None

PATIENT
  Age: 32 Year
  Sex: Female
  Weight: 108 kg

DRUGS (7)
  1. CYMBALTA [Suspect]
     Active Substance: DULOXETINE HYDROCHLORIDE
     Indication: FIBROMYALGIA
     Dosage: ?          QUANTITY:30 CAPSULE(S);OTHER FREQUENCY:ONE EVERY 2 DAYS;?
     Route: 048
     Dates: start: 20200901
  2. LYRICA [Concomitant]
     Active Substance: PREGABALIN
  3. ALBUTEROL. [Concomitant]
     Active Substance: ALBUTEROL
  4. TYLENOL [Concomitant]
     Active Substance: ACETAMINOPHEN
  5. HUMIRA [Concomitant]
     Active Substance: ADALIMUMAB
  6. MUCINEX [Concomitant]
     Active Substance: GUAIFENESIN
  7. CYMBALTA [Suspect]
     Active Substance: DULOXETINE HYDROCHLORIDE
     Indication: DEPRESSION
     Dosage: ?          QUANTITY:30 CAPSULE(S);OTHER FREQUENCY:ONE EVERY 2 DAYS;?
     Route: 048
     Dates: start: 20200901

REACTIONS (3)
  - Withdrawal syndrome [None]
  - Suicidal ideation [None]
  - Menstrual disorder [None]

NARRATIVE: CASE EVENT DATE: 20201005
